FAERS Safety Report 20254360 (Version 1)
Quarter: 2021Q4

REPORT INFORMATION
  Report Type: Spontaneous
  Country: IT (occurrence: IT)
  Receive Date: 20211230
  Receipt Date: 20211230
  Transmission Date: 20220303
  Serious: Yes (Other)
  Sender: FDA-Public Use
  Company Number: IT-SUN PHARMACEUTICAL INDUSTRIES LTD-2021RR-321827

PATIENT
  Age: 23 Year
  Sex: Female

DRUGS (4)
  1. LEVETIRACETAM [Suspect]
     Active Substance: LEVETIRACETAM
     Indication: Epilepsy
     Dosage: 1000 MILLIGRAM, DAILY
     Route: 065
  2. ALPRAZOLAM [Suspect]
     Active Substance: ALPRAZOLAM
     Indication: Panic attack
     Dosage: UNK
     Route: 065
  3. ACETAZOLAMIDE [Suspect]
     Active Substance: ACETAZOLAMIDE
     Indication: Epilepsy
     Dosage: 250 MILLIGRAM, BID
     Route: 065
  4. VORTIOXETINE [Suspect]
     Active Substance: VORTIOXETINE
     Indication: Panic attack
     Dosage: UNK
     Route: 065

REACTIONS (5)
  - Depression [Recovering/Resolving]
  - Suicidal ideation [Recovering/Resolving]
  - Therapeutic product effect incomplete [Unknown]
  - Paraesthesia [Unknown]
  - Drug ineffective [Unknown]
